FAERS Safety Report 6554777-X (Version None)
Quarter: 2010Q1

REPORT INFORMATION
  Report Type: 
  Country: None (occurrence: None)
  Receive Date: 20100125
  Receipt Date: 20100114
  Transmission Date: 20100710
  Serious: Yes (Other)
  Sender: FDA-Public Use
  Company Number: 2010EU000194

PATIENT
  Age: 29 Month
  Sex: Male
  Weight: 12 kg

DRUGS (6)
  1. PROGRAF [Suspect]
     Indication: RENAL TRANSPLANT
  2. CELLCEPT [Suspect]
     Indication: RENAL TRANSPLANT
  3. PREDNISONE [Suspect]
     Indication: RENAL TRANSPLANT
  4. BACTRIM [Concomitant]
  5. ZOVIRAX [Concomitant]
  6. BICARBONATE  DE SODIUM AGUETTANT [Concomitant]

REACTIONS (2)
  - APLASTIC ANAEMIA [None]
  - EPSTEIN-BARR VIRUS INFECTION [None]
